FAERS Safety Report 8832409 (Version 1)
Quarter: 2012Q4

REPORT INFORMATION
  Report Type: 
  Country: US (occurrence: US)
  Receive Date: 20121009
  Receipt Date: 20121009
  Transmission Date: 20130627
  Serious: No
  Sender: FDA-Public Use
  Company Number: US-ASTRAZENECA-2012SE74334

PATIENT
  Age: 52 Year
  Sex: Male
  Weight: 99.8 kg

DRUGS (5)
  1. NEXIUM [Suspect]
     Indication: GASTROOESOPHAGEAL REFLUX DISEASE
     Route: 048
     Dates: start: 20120922
  2. TRAMADOL [Concomitant]
     Indication: PAIN
  3. ASPIRIN [Concomitant]
     Indication: ANTICOAGULANT THERAPY
  4. CYCLOSPORIN [Concomitant]
     Indication: INTERVERTEBRAL DISC DEGENERATION
  5. FEXOFENADINE HCL [Concomitant]
     Indication: HYPERSENSITIVITY

REACTIONS (4)
  - Formication [Recovering/Resolving]
  - Headache [Recovering/Resolving]
  - Pruritus [Recovering/Resolving]
  - Rash [Unknown]
